FAERS Safety Report 6466100-X (Version None)
Quarter: 2009Q4

REPORT INFORMATION
  Report Type: 
  Country: None (occurrence: None)
  Receive Date: 20091201
  Receipt Date: 20091201
  Transmission Date: 20100525
  Serious: No
  Sender: FDA-Public Use
  Company Number: None

PATIENT
  Sex: Female
  Weight: 125.1928 kg

DRUGS (1)
  1. TRILIPIX [Suspect]
     Indication: BLOOD CHOLESTEROL
     Dosage: 1 A DAY EVERYDAY
     Dates: start: 20090922

REACTIONS (2)
  - ANXIETY [None]
  - RESTLESS LEGS SYNDROME [None]
